FAERS Safety Report 6424087-X (Version None)
Quarter: 2009Q4

REPORT INFORMATION
  Report Type: 
  Country: None (occurrence: None)
  Receive Date: 20091102
  Receipt Date: 20091012
  Transmission Date: 20100525
  Serious: Yes (Other)
  Sender: FDA-Public Use
  Company Number: PHEH2009US10727

PATIENT
  Sex: Female

DRUGS (7)
  1. EXJADE [Suspect]
     Indication: SICKLE CELL ANAEMIA
     Dosage: 1000 MG, QD
     Route: 048
     Dates: start: 20090810, end: 20091002
  2. OXYCODONE [Concomitant]
  3. FOLIC ACID [Concomitant]
     Dosage: 1 MG, QD
     Route: 048
  4. HYDROXYUREA [Concomitant]
     Dosage: 500 MG, QD
     Route: 048
  5. MULTI-VITAMINS [Concomitant]
  6. ESTRACE [Concomitant]
     Route: 048
  7. PERCOCET [Concomitant]

REACTIONS (13)
  - BACK PAIN [None]
  - BLOOD BILIRUBIN INCREASED [None]
  - BLOOD CALCIUM DECREASED [None]
  - BLOOD CHLORIDE INCREASED [None]
  - CHEST PAIN [None]
  - DRUG DOSE OMISSION [None]
  - MALAISE [None]
  - NAUSEA [None]
  - OCULAR ICTERUS [None]
  - PYREXIA [None]
  - SICKLE CELL ANAEMIA WITH CRISIS [None]
  - VOMITING [None]
  - WHITE BLOOD CELL COUNT INCREASED [None]
